FAERS Safety Report 5037748-4 (Version None)
Quarter: 2006Q2

REPORT INFORMATION
  Report Type: 
  Country: None (occurrence: None)
  Receive Date: 20060626
  Receipt Date: 20060620
  Transmission Date: 20061013
  Serious: Yes (Hospitalization)
  Sender: FDA-Public Use
  Company Number: 2006-05-2281

PATIENT
  Age: 31 Year
  Sex: Male

DRUGS (4)
  1. NASONEX [Suspect]
     Indication: SINUSITIS
     Dosage: NASAL SPRAY
  2. NASONEX [Suspect]
     Indication: SINUSITIS
     Dosage: NASAL SPRAY
     Dates: start: 20060601
  3. MOMETASONE FUROATE [Suspect]
     Indication: SINUSITIS
     Dosage: 2P/NOSTR. BID NASAL SPRA
     Dates: start: 20050531, end: 20051201
  4. CELESTONE TAB [Suspect]
     Indication: SINUSITIS
     Dosage: BLINDED ORAL
     Route: 048
     Dates: start: 20050524, end: 20050530

REACTIONS (2)
  - SINUS OPERATION [None]
  - SURGICAL PROCEDURE REPEATED [None]
